FAERS Safety Report 23929268 (Version 1)
Quarter: 2024Q2

REPORT INFORMATION
  Report Type: Spontaneous
  Country: US (occurrence: US)
  Receive Date: 20240601
  Receipt Date: 20240601
  Transmission Date: 20240715
  Serious: No
  Sender: FDA-Public Use
  Company Number: US-RADIUS HEALTH INC.-2024US001051

PATIENT
  Sex: Female

DRUGS (2)
  1. TYMLOS [Suspect]
     Active Substance: ABALOPARATIDE
     Indication: Product used for unknown indication
     Dosage: 80 MICROGRAM, QD
     Route: 058
  2. TYMLOS [Suspect]
     Active Substance: ABALOPARATIDE
     Dosage: 80 MICROGRAM, QD
     Route: 058

REACTIONS (9)
  - Fall [Unknown]
  - Spinal fracture [Unknown]
  - Illness [Recovering/Resolving]
  - Intentional dose omission [Unknown]
  - Flank pain [Unknown]
  - Nausea [Unknown]
  - Back pain [Unknown]
  - Abdominal distension [Unknown]
  - Abdominal pain upper [Unknown]
